APPROVED DRUG PRODUCT: INTRAROSA
Active Ingredient: PRASTERONE
Strength: 6.5MG
Dosage Form/Route: INSERT;VAGINAL
Application: N208470 | Product #001
Applicant: MILLICENT PHARMA LTD
Approved: Nov 16, 2016 | RLD: Yes | RS: Yes | Type: RX

PATENTS:
Patent 8957054 | Expires: Jan 8, 2030
Patent 8268806 | Expires: Mar 19, 2031
Patent 8629129 | Expires: Aug 7, 2028